FAERS Safety Report 19837187 (Version 1)
Quarter: 2021Q3

REPORT INFORMATION
  Report Type: Spontaneous
  Country: GB (occurrence: GB)
  Receive Date: 20210916
  Receipt Date: 20210916
  Transmission Date: 20211014
  Serious: Yes (Other)
  Sender: FDA-Public Use
  Company Number: GB-DRREDDYS-CLI/UKI/21/0139994

PATIENT
  Age: 79 Year
  Sex: Male

DRUGS (3)
  1. LUPRON DEPOT [Suspect]
     Active Substance: LEUPROLIDE ACETATE
     Indication: PRODUCT USED FOR UNKNOWN INDICATION
     Route: 065
  2. PREDNISOLONE. [Concomitant]
     Active Substance: PREDNISOLONE
     Indication: PROSTATE CANCER
     Route: 048
     Dates: start: 20210609
  3. ABIRATERONE. [Suspect]
     Active Substance: ABIRATERONE ACETATE
     Indication: PROSTATE CANCER
     Route: 048
     Dates: start: 20210609

REACTIONS (10)
  - Hypercholesterolaemia [Unknown]
  - Emotional disorder [Unknown]
  - Hyperhidrosis [Recovering/Resolving]
  - Lacrimation increased [Recovering/Resolving]
  - Diarrhoea [Recovered/Resolved]
  - Retching [Recovering/Resolving]
  - Chest discomfort [Recovered/Resolved]
  - Vision blurred [Not Recovered/Not Resolved]
  - Dyspepsia [Unknown]
  - Meniere^s disease [Unknown]

NARRATIVE: CASE EVENT DATE: 202107
